FAERS Safety Report 21597427 (Version 1)
Quarter: 2022Q4

REPORT INFORMATION
  Report Type: Spontaneous
  Country: US (occurrence: None)
  Receive Date: 20221114
  Receipt Date: 20221114
  Transmission Date: 20230113
  Serious: No
  Sender: FDA-Public Use
  Company Number: None

PATIENT
  Age: 27 Year
  Sex: Female
  Weight: 72 kg

DRUGS (1)
  1. KYLEENA [Suspect]
     Active Substance: LEVONORGESTREL
     Indication: Contraception
     Dates: start: 20200930, end: 20221004

REACTIONS (6)
  - Breast tenderness [None]
  - Anxiety [None]
  - Depression [None]
  - Anger [None]
  - Acne [None]
  - Loss of libido [None]
